FAERS Safety Report 4808443-9 (Version None)
Quarter: 2005Q4

REPORT INFORMATION
  Report Type: 
  Country: None (occurrence: None)
  Receive Date: 20051020
  Receipt Date: 20051012
  Transmission Date: 20060501
  Serious: Yes (Hospitalization)
  Sender: FDA-Public Use
  Company Number: GBWYE050612OCT05

PATIENT
  Age: 32 Year
  Sex: Female

DRUGS (3)
  1. EFFEXOR [Suspect]
     Dosage: OVERDOSED ON 3150MG UNKNOWN
     Route: 065
     Dates: start: 20051013, end: 20051013
  2. DIAZEPAM [Suspect]
     Dosage: OVERDOSED ON 5MG TABLETS (30-40 TABLETS) UNKNOWN
     Route: 065
     Dates: start: 20051013, end: 20051013
  3. ETHANOL (ETHANOL , , 0) [Suspect]
     Dosage: UNKNOWN
     Route: 065
     Dates: start: 20051013, end: 20051013

REACTIONS (8)
  - ABASIA [None]
  - ALCOHOL WITHDRAWAL SYNDROME [None]
  - GAIT DISTURBANCE [None]
  - INCONTINENCE [None]
  - INTENTIONAL DRUG MISUSE [None]
  - MULTIPLE DRUG OVERDOSE [None]
  - MYDRIASIS [None]
  - TACHYCARDIA [None]
